FAERS Safety Report 6878105-5 (Version None)
Quarter: 2010Q2

REPORT INFORMATION
  Report Type: 
  Country: None (occurrence: None)
  Receive Date: 20100616
  Receipt Date: 20100224
  Transmission Date: 20101027
  Serious: No
  Sender: FDA-Public Use
  Company Number: DSA_42682_2010

PATIENT
  Sex: Male

DRUGS (4)
  1. XENAZINE [Suspect]
     Indication: HUNTINGTON'S CHOREA
     Dosage: 50 MG, 12.5 MG TABLETS:  2 TABLETS IN AM, 1 TABLET AFTERNOON AND 1 TABLET IN PM. ORAL
     Route: 048
     Dates: start: 20091230
  2. REMERON [Concomitant]
  3. BUPROPION HYDROCHLORIDE [Concomitant]
  4. LITHIUM CARBONATE [Concomitant]

REACTIONS (6)
  - ABDOMINAL DISCOMFORT [None]
  - CONSTIPATION [None]
  - DEPRESSION [None]
  - INCREASED APPETITE [None]
  - NAUSEA [None]
  - VOMITING [None]
